FAERS Safety Report 17583481 (Version 7)
Quarter: 2021Q3

REPORT INFORMATION
  Report Type: Report from Study
  Country: US (occurrence: US)
  Receive Date: 20200326
  Receipt Date: 20210917
  Transmission Date: 20211014
  Serious: Yes (Hospitalization)
  Sender: FDA-Public Use
  Company Number: US-ROCHE-2568868

PATIENT
  Age: 55 Year
  Sex: Female
  Weight: 60 kg

DRUGS (24)
  1. CHOLECALCIFEROL [Concomitant]
     Active Substance: CHOLECALCIFEROL
  2. DIAZEPAM. [Concomitant]
     Active Substance: DIAZEPAM
     Route: 048
  3. CARBOPLATIN. [Suspect]
     Active Substance: CARBOPLATIN
     Indication: TRIPLE NEGATIVE BREAST CANCER
     Dosage: DATE OF THE LAST DOSE PRIOR TO THE EVENT: 06/MAR/2020 AND 27/MAR/2020
     Route: 042
     Dates: end: 20210625
  4. RIVAROXABAN [Concomitant]
     Active Substance: RIVAROXABAN
  5. CLARITIN [Concomitant]
     Active Substance: LORATADINE
  6. NEUPOGEN [Concomitant]
     Active Substance: FILGRASTIM
  7. FENTANYL. [Concomitant]
     Active Substance: FENTANYL
  8. ZYRTEC (UNITED STATES) [Concomitant]
  9. VANCOMYCIN [Concomitant]
     Active Substance: VANCOMYCIN
  10. DEXAMETHASONE. [Concomitant]
     Active Substance: DEXAMETHASONE
     Route: 048
  11. DIPHENHYDRAMINE. [Concomitant]
     Active Substance: DIPHENHYDRAMINE
  12. POTASSIUM PHOSPHATE [Concomitant]
     Active Substance: POTASSIUM PHOSPHATE
  13. LEVOTHYROXINE. [Concomitant]
     Active Substance: LEVOTHYROXINE
     Route: 048
  14. XARELTO [Concomitant]
     Active Substance: RIVAROXABAN
     Route: 048
  15. OLANZAPINE. [Concomitant]
     Active Substance: OLANZAPINE
  16. ATIVAN [Concomitant]
     Active Substance: LORAZEPAM
  17. SENNA [Concomitant]
     Active Substance: SENNA LEAF\SENNOSIDES\SENNOSIDES A AND B
  18. VITAMIN D3 CALCIUM [Concomitant]
     Active Substance: CALCIUM\CHOLECALCIFEROL
  19. OLANZAPINE. [Concomitant]
     Active Substance: OLANZAPINE
  20. ONDANSETRON [Concomitant]
     Active Substance: ONDANSETRON
     Route: 048
  21. OXYCODONE [Concomitant]
     Active Substance: OXYCODONE
  22. PROCHLORPERAZINE. [Concomitant]
     Active Substance: PROCHLORPERAZINE
     Route: 048
  23. VALIUM [Concomitant]
     Active Substance: DIAZEPAM
     Route: 048
  24. ZYPREXA [Concomitant]
     Active Substance: OLANZAPINE
     Route: 048

REACTIONS (3)
  - Pyrexia [Recovered/Resolved]
  - Malaise [Not Recovered/Not Resolved]
  - Asthenia [Recovered/Resolved]

NARRATIVE: CASE EVENT DATE: 20200308
